FAERS Safety Report 24128052 (Version 1)
Quarter: 2024Q3

REPORT INFORMATION
  Report Type: Spontaneous
  Country: TW (occurrence: TW)
  Receive Date: 20240723
  Receipt Date: 20240723
  Transmission Date: 20241016
  Serious: Yes (Death)
  Sender: BAYER
  Company Number: TW-BAYER-2024A106668

PATIENT
  Sex: Male

DRUGS (4)
  1. XOFIGO [Suspect]
     Active Substance: RADIUM RA-223 DICHLORIDE
  2. XOFIGO [Suspect]
     Active Substance: RADIUM RA-223 DICHLORIDE
  3. XOFIGO [Suspect]
     Active Substance: RADIUM RA-223 DICHLORIDE
  4. XOFIGO [Suspect]
     Active Substance: RADIUM RA-223 DICHLORIDE

REACTIONS (1)
  - Death [Fatal]
